FAERS Safety Report 4643886-8 (Version None)
Quarter: 2005Q2

REPORT INFORMATION
  Report Type: 
  Country: None (occurrence: None)
  Receive Date: 20050421
  Receipt Date: 20050411
  Transmission Date: 20051028
  Serious: Yes (Other)
  Sender: FDA-Public Use
  Company Number: CHPA2003US02315

PATIENT
  Age: 38 Year
  Sex: Female

DRUGS (14)
  1. EX-LAX LAXATIVE UNKNOWN FORMULA (NCH) (UNKNOWN) UNKNOWN [Suspect]
     Dosage: ORAL
     Route: 048
     Dates: start: 19860101
  2. CORRECTOL [Suspect]
     Dosage: ORAL
     Route: 048
     Dates: start: 19860101
  3. NITROGLYCERIN [Concomitant]
  4. ALBUTEROL [Concomitant]
  5. SINGULAIR [Concomitant]
  6. COMBINATIONS OF VITAMINS [Concomitant]
  7. TYLENOL [Concomitant]
  8. VASOTEC [Concomitant]
  9. IMDUR [Concomitant]
  10. SYNTHROID [Concomitant]
  11. ASPIRIN [Concomitant]
  12. MOTRIN [Concomitant]
  13. DEMEROL [Concomitant]
  14. PHENERGAN [Concomitant]

REACTIONS (20)
  - ABDOMINAL PAIN [None]
  - ABDOMINAL PAIN UPPER [None]
  - ARTHRALGIA [None]
  - CARDIAC DISORDER [None]
  - CARDIOMYOPATHY [None]
  - CHEST PAIN [None]
  - CONSTIPATION [None]
  - CONTUSION [None]
  - DIARRHOEA [None]
  - DRUG DEPENDENCE [None]
  - ECONOMIC PROBLEM [None]
  - FAECALOMA [None]
  - GASTRITIS [None]
  - HELICOBACTER PYLORI IDENTIFICATION TEST POSITIVE [None]
  - HYPERTENSION [None]
  - INJURY [None]
  - IRRITABLE BOWEL SYNDROME [None]
  - PANCREATITIS [None]
  - PLATELET COUNT DECREASED [None]
  - WEIGHT DECREASED [None]
